FAERS Safety Report 5763519-7 (Version None)
Quarter: 2008Q2

REPORT INFORMATION
  Report Type: 
  Country: None (occurrence: None)
  Receive Date: 20080610
  Receipt Date: 20080603
  Transmission Date: 20081010
  Serious: Yes (Death)
  Sender: FDA-Public Use
  Company Number: BE-BAYER-200812248GPV

PATIENT
  Age: 0 Hour
  Sex: Male
  Weight: 0.65 kg

DRUGS (1)
  1. MIRENA [Suspect]
     Route: 064
     Dates: start: 20070101, end: 20071022

REACTIONS (1)
  - PREMATURE BABY [None]
